FAERS Safety Report 5140874-2 (Version None)
Quarter: 2006Q4

REPORT INFORMATION
  Report Type: 
  Country: None (occurrence: None)
  Receive Date: 20060901
  Receipt Date: 20060622
  Transmission Date: 20070319
  Serious: No
  Sender: FDA-Public Use
  Company Number: 2006MP000828

PATIENT
  Sex: Male

DRUGS (1)
  1. DACOGEN [Suspect]
     Indication: MYELODYSPLASTIC SYNDROME
     Dosage: 43 MX;X1;IV
     Route: 042
     Dates: start: 20060621, end: 20060621

REACTIONS (2)
  - DRUG ADMINISTRATION ERROR [None]
  - INJECTION SITE SWELLING [None]
